FAERS Safety Report 23266783 (Version 3)
Quarter: 2024Q1

REPORT INFORMATION
  Report Type: Spontaneous
  Country: US (occurrence: US)
  Receive Date: 20231206
  Receipt Date: 20240328
  Transmission Date: 20240410
  Serious: No
  Sender: FDA-Public Use
  Company Number: US-SA-SAC20231130000128

PATIENT
  Age: 52 Year
  Sex: Female
  Weight: 65.8 kg

DRUGS (2)
  1. DUPIXENT [Suspect]
     Active Substance: DUPILUMAB
     Indication: Asthma
     Dosage: UNK, 1X
     Route: 058
     Dates: start: 20230531, end: 20230531
  2. DUPIXENT [Suspect]
     Active Substance: DUPILUMAB
     Dosage: 300 MG, QOW
     Route: 058
     Dates: end: 20240208

REACTIONS (8)
  - COVID-19 [Unknown]
  - Muscle spasms [Unknown]
  - Middle insomnia [Unknown]
  - Insomnia [Unknown]
  - Vision blurred [Recovered/Resolved]
  - Eye pruritus [Unknown]
  - Dry eye [Unknown]
  - Asthma [Unknown]

NARRATIVE: CASE EVENT DATE: 20230901
